FAERS Safety Report 7250236-X (Version None)
Quarter: 2011Q1

REPORT INFORMATION
  Report Type: 
  Country: None (occurrence: None)
  Receive Date: 20110128
  Receipt Date: 20110105
  Transmission Date: 20110831
  Serious: Yes (Death, Life-Threatening, Other)
  Sender: FDA-Public Use
  Company Number: JP-BAYER-200912937BYL

PATIENT
  Sex: Male
  Weight: 77 kg

DRUGS (13)
  1. OMEPRAL [Concomitant]
     Indication: PROPHYLAXIS AGAINST GASTROINTESTINAL ULCER
     Dosage: 20 MG (DAILY DOSE), , ORAL
     Route: 048
     Dates: start: 20080201
  2. URSO 250 [Concomitant]
     Dosage: 600 MG (DAILY DOSE), , ORAL
     Route: 048
     Dates: start: 20070601
  3. LASIX [Concomitant]
     Dosage: 40 MG (DAILY DOSE), , ORAL
     Route: 048
     Dates: start: 20090728
  4. NAIXAN [Concomitant]
     Indication: CANCER PAIN
     Dosage: 300 MG (DAILY DOSE), , ORAL
     Route: 048
     Dates: start: 20090420
  5. NOVAMIN [Concomitant]
     Indication: ADVERSE DRUG REACTION
     Route: 048
     Dates: start: 20090706, end: 20090706
  6. NEXAVAR [Suspect]
     Indication: HEPATIC NEOPLASM MALIGNANT
     Route: 048
     Dates: start: 20090609, end: 20090806
  7. LIVACT [Concomitant]
     Dosage: 3 DF (DAILY DOSE), , ORAL
     Route: 048
     Dates: start: 20090127
  8. OXINORM [Concomitant]
     Indication: CANCER PAIN
     Route: 048
     Dates: start: 20090706
  9. ALDACTONE [Concomitant]
     Dosage: 100 MG (DAILY DOSE), , ORAL
     Route: 048
     Dates: start: 20090728
  10. BETAMETHASONE [Concomitant]
     Dosage: 4 MG (DAILY DOSE), , ORAL
     Route: 048
     Dates: start: 20090819
  11. OXYCONTIN [Concomitant]
     Indication: CANCER PAIN
     Dosage: 20 MG (DAILY DOSE), , ORAL
     Route: 048
     Dates: start: 20090713, end: 20090818
  12. DUROTEP [Concomitant]
     Indication: CANCER PAIN
     Dosage: 2.1 MG (DAILY DOSE), , TRANSDERMAL
     Route: 062
     Dates: start: 20090819
  13. ANPEC [Concomitant]
     Indication: CANCER PAIN
     Dosage: 10 MG (DAILY DOSE), , RECTAL
     Route: 054
     Dates: start: 20090819, end: 20090819

REACTIONS (3)
  - ASCITES [None]
  - HEPATIC NEOPLASM MALIGNANT [None]
  - LIVER DISORDER [None]
